FAERS Safety Report 17575394 (Version 1)
Quarter: 2020Q1

REPORT INFORMATION
  Report Type: Spontaneous
  Country: ES (occurrence: ES)
  Receive Date: 20200324
  Receipt Date: 20200324
  Transmission Date: 20200409
  Serious: Yes (Other)
  Sender: FDA-Public Use
  Company Number: ES-UCBSA-2020012099

PATIENT
  Age: 53 Year
  Sex: Female

DRUGS (9)
  1. LEVETIRACETAM. [Suspect]
     Active Substance: LEVETIRACETAM
     Indication: MYOCLONIC EPILEPSY
     Dosage: UNK
  2. TOPIRAMATE. [Concomitant]
     Active Substance: TOPIRAMATE
     Indication: MYOCLONIC EPILEPSY
  3. DEPAKENE [Concomitant]
     Active Substance: VALPROIC ACID
     Indication: MYOCLONIC EPILEPSY
     Dosage: 1.5 UNK, UNK
  4. PERAMPANEL [Concomitant]
     Active Substance: PERAMPANEL
     Indication: MYOCLONIC EPILEPSY
  5. VALPROIC ACID. [Concomitant]
     Active Substance: VALPROIC ACID
     Indication: MYOCLONIC EPILEPSY
  6. MYSOLINE [Concomitant]
     Active Substance: PRIMIDONE
     Indication: MYOCLONIC EPILEPSY
  7. CLOBAZAM. [Concomitant]
     Active Substance: CLOBAZAM
     Indication: MYOCLONIC EPILEPSY
  8. LAMOTRIGINE. [Concomitant]
     Active Substance: LAMOTRIGINE
     Indication: MYOCLONIC EPILEPSY
  9. ZONISAMIDE. [Concomitant]
     Active Substance: ZONISAMIDE
     Indication: MYOCLONIC EPILEPSY

REACTIONS (1)
  - Seizure [Recovering/Resolving]
